FAERS Safety Report 5057741-5 (Version None)
Quarter: 2006Q3

REPORT INFORMATION
  Report Type: 
  Country: None (occurrence: None)
  Receive Date: 20060721
  Receipt Date: 20060201
  Transmission Date: 20061208
  Serious: No
  Sender: FDA-Public Use
  Company Number: US-GLAXOSMITHKLINE-A0591947A

PATIENT
  Age: 70 Year
  Sex: Female

DRUGS (3)
  1. AVANDIA [Suspect]
     Dosage: 8MG PER DAY
     Route: 048
     Dates: start: 20051201
  2. GLUCOTROL [Concomitant]
  3. LIPITOR [Concomitant]

REACTIONS (2)
  - HEART RATE INCREASED [None]
  - WEIGHT INCREASED [None]
